FAERS Safety Report 19954500 (Version 1)
Quarter: 2021Q4

REPORT INFORMATION
  Report Type: Spontaneous
  Country: US (occurrence: US)
  Receive Date: 20211013
  Receipt Date: 20211013
  Transmission Date: 20220304
  Serious: No
  Sender: FDA-Public Use
  Company Number: US-AVEO ONCOLOGY-2021-AVEO-US003401

PATIENT

DRUGS (2)
  1. FOTIVDA [Suspect]
     Active Substance: TIVOZANIB HYDROCHLORIDE
     Indication: Renal cell carcinoma
     Dosage: 1.34 MG, DAILY FOR 21 DAYS, THEN 7DAYS OFF
     Route: 048
     Dates: start: 20210525, end: 20210607
  2. FOTIVDA [Suspect]
     Active Substance: TIVOZANIB HYDROCHLORIDE
     Dosage: 1.34 MG, EVERY OTHER DAY FOR 21 DAYS AND FOLLOWING 7-DAY OFF
     Route: 048
     Dates: start: 20210701

REACTIONS (5)
  - Nausea [Not Recovered/Not Resolved]
  - Blood pressure increased [Unknown]
  - Treatment noncompliance [Unknown]
  - Therapy cessation [Unknown]
  - Dizziness [Not Recovered/Not Resolved]
